FAERS Safety Report 5329930-3 (Version None)
Quarter: 2007Q2

REPORT INFORMATION
  Report Type: 
  Country: None (occurrence: None)
  Receive Date: 20070521
  Receipt Date: 20070510
  Transmission Date: 20071010
  Serious: Yes (Life-Threatening)
  Sender: FDA-Public Use
  Company Number: FR-JNJFOC-20060500995

PATIENT
  Age: 26 Year
  Sex: Male
  Weight: 70 kg

DRUGS (2)
  1. REMICADE [Suspect]
     Indication: CROHN'S DISEASE
     Dosage: 6 INFUSIONS
     Route: 042
  2. AZATHIOPRINE SODIUM [Suspect]
     Indication: CROHN'S DISEASE
     Route: 048

REACTIONS (2)
  - COLON CANCER [None]
  - GASTROINTESTINAL MOTILITY DISORDER [None]
